FAERS Safety Report 4523063-1 (Version None)
Quarter: 2004Q4

REPORT INFORMATION
  Report Type: 
  Country: None (occurrence: None)
  Receive Date: 20041210
  Receipt Date: 20041201
  Transmission Date: 20050328
  Serious: Yes (Other)
  Sender: FDA-Public Use
  Company Number: GB-JNJFOC-20041200468

PATIENT
  Age: 13 Year
  Sex: Male

DRUGS (1)
  1. CONCERTA [Suspect]
     Indication: DRUG USE FOR UNKNOWN INDICATION
     Route: 065

REACTIONS (6)
  - BRUXISM [None]
  - DYSKINESIA [None]
  - HALLUCINATION [None]
  - HEART RATE INCREASED [None]
  - MUSCLE CONTRACTURE [None]
  - POSTURE ABNORMAL [None]
